FAERS Safety Report 17749927 (Version 3)
Quarter: 2020Q3

REPORT INFORMATION
  Report Type: Spontaneous
  Country: JP (occurrence: JP)
  Receive Date: 20200506
  Receipt Date: 20200713
  Transmission Date: 20201102
  Serious: Yes (Other)
  Sender: FDA-Public Use
  Company Number: JP-BRISTOL-MYERS SQUIBB COMPANY-BMS-2020-035114

PATIENT
  Age: 83 Year
  Sex: Female

DRUGS (2)
  1. ORENCIA [Suspect]
     Active Substance: ABATACEPT
     Indication: RHEUMATIC DISORDER
     Dosage: UNAVAILABLE
     Route: 042
  2. CARERAM [Concomitant]
     Active Substance: IGURATIMOD
     Indication: RHEUMATIC DISORDER
     Dosage: UNK
     Route: 048

REACTIONS (3)
  - Lymphocyte count decreased [Recovered/Resolved]
  - Anaemia [Recovered/Resolved]
  - Fall [Unknown]
